FAERS Safety Report 20214334 (Version 1)
Quarter: 2021Q4

REPORT INFORMATION
  Report Type: Spontaneous
  Country: ES (occurrence: ES)
  Receive Date: 20211221
  Receipt Date: 20211221
  Transmission Date: 20220303
  Serious: Yes (Hospitalization)
  Sender: FDA-Public Use
  Company Number: None

PATIENT
  Age: 73 Year
  Sex: Male

DRUGS (1)
  1. METHOTREXATE SODIUM [Suspect]
     Active Substance: METHOTREXATE SODIUM
     Indication: Psoriasis
     Dosage: 2.5 MG, FREQ: 6 WEEK
     Route: 048
     Dates: start: 201406, end: 20211028

REACTIONS (4)
  - Pancytopenia [Recovering/Resolving]
  - Intestinal villi atrophy [Recovering/Resolving]
  - Chronic gastritis [Recovering/Resolving]
  - Off label use [Unknown]

NARRATIVE: CASE EVENT DATE: 20140601
